FAERS Safety Report 5575478-0 (Version None)
Quarter: 2007Q4

REPORT INFORMATION
  Report Type: 
  Country: None (occurrence: None)
  Receive Date: 20071130
  Receipt Date: 20070803
  Transmission Date: 20080405
  Serious: No
  Sender: FDA-Public Use
  Company Number: US200706004628

PATIENT
  Age: 68 Year
  Sex: Female

DRUGS (2)
  1. BYETTA [Suspect]
     Indication: TYPE 2 DIABETES MELLITUS
     Dosage: 5 UG, SUBCUTANEOUS
     Route: 058
     Dates: start: 20070619, end: 20070101
  2. ANTIBIOTICS FOR TOPICAL USE [Concomitant]

REACTIONS (7)
  - ABDOMINAL DISTENSION [None]
  - BLISTER [None]
  - DECREASED APPETITE [None]
  - DIARRHOEA [None]
  - INJECTION SITE RASH [None]
  - NAUSEA [None]
  - URTICARIA [None]
